FAERS Safety Report 25622738 (Version 1)
Quarter: 2025Q3

REPORT INFORMATION
  Report Type: Report from Study
  Country: KR (occurrence: KR)
  Receive Date: 20250730
  Receipt Date: 20250730
  Transmission Date: 20251021
  Serious: Yes (Hospitalization)
  Sender: KARYOPHARM THERAPEUTICS
  Company Number: KR-ANTENGENE-20250703258

PATIENT
  Age: 78 Year
  Sex: Female

DRUGS (9)
  1. SELINEXOR [Suspect]
     Active Substance: SELINEXOR
     Indication: Plasma cell myeloma
     Route: 048
     Dates: start: 20250626, end: 20250629
  2. DEXAMETHASONE [Concomitant]
     Active Substance: DEXAMETHASONE
     Indication: Plasma cell myeloma
     Route: 048
     Dates: start: 20250626, end: 20250626
  3. PANTOPRAZOLE SODIUM [Concomitant]
     Active Substance: PANTOPRAZOLE SODIUM
     Indication: Prophylaxis
     Route: 048
     Dates: start: 20250626, end: 20250626
  4. KANITRON [Concomitant]
     Indication: Prophylaxis
     Route: 048
     Dates: start: 20250626, end: 20250626
  5. MACPERAN [METOCLOPRAMIDE] [Concomitant]
     Indication: Prophylaxis
     Route: 048
     Dates: start: 20250626, end: 20250626
  6. ALOGLIPTIN BENZOATE\METFORMIN HYDROCHLORIDE [Concomitant]
     Active Substance: ALOGLIPTIN BENZOATE\METFORMIN HYDROCHLORIDE
     Indication: Diabetes mellitus
     Route: 048
     Dates: start: 2018
  7. VALDIPINE [Concomitant]
     Indication: Hypertension
     Route: 048
     Dates: start: 2004
  8. ATORVASTATIN CALCIUM [Concomitant]
     Active Substance: ATORVASTATIN CALCIUM
     Indication: Hypertension
     Route: 048
     Dates: start: 2004
  9. NICORANDIL [Concomitant]
     Active Substance: NICORANDIL
     Indication: Hypertension
     Route: 048
     Dates: start: 2004

REACTIONS (2)
  - Cholecystitis acute [Recovering/Resolving]
  - Escherichia bacteraemia [Recovered/Resolved]

NARRATIVE: CASE EVENT DATE: 20250628
